FAERS Safety Report 8205315-7 (Version None)
Quarter: 2012Q1

REPORT INFORMATION
  Report Type: 
  Country: None (occurrence: None)
  Receive Date: 20120313
  Receipt Date: 20120229
  Transmission Date: 20120608
  Serious: Yes (Other)
  Sender: FDA-Public Use
  Company Number: DE-UCBSA-050473

PATIENT
  Age: 78 Year
  Sex: Female

DRUGS (2)
  1. NEUPRO [Suspect]
     Indication: RESTLESS LEGS SYNDROME
     Route: 062
     Dates: start: 20110601
  2. TRIMIPRAMINE MALEATE [Concomitant]
     Indication: SLEEP DISORDER
     Route: 048
     Dates: start: 20110701

REACTIONS (2)
  - ALANINE AMINOTRANSFERASE [None]
  - GAMMA-GLUTAMYLTRANSFERASE [None]
